FAERS Safety Report 15662857 (Version 4)
Quarter: 2020Q3

REPORT INFORMATION
  Report Type: Spontaneous
  Country: US (occurrence: US)
  Receive Date: 20181127
  Receipt Date: 20200724
  Transmission Date: 20201102
  Serious: Yes (Other)
  Sender: FDA-Public Use
  Company Number: US-SA-2018SA187502

PATIENT

DRUGS (7)
  1. TAXOTERE [Suspect]
     Active Substance: DOCETAXEL
     Indication: INVASIVE DUCTAL BREAST CARCINOMA
     Dosage: 55 MG, QW
     Route: 042
     Dates: start: 20110902, end: 20110902
  2. TAXOTERE [Suspect]
     Active Substance: DOCETAXEL
     Dosage: 55 MG, QW
     Route: 042
     Dates: start: 20111111, end: 20111111
  3. TAXOTERE [Suspect]
     Active Substance: DOCETAXEL
     Dosage: 55 MG, QW
     Route: 042
     Dates: start: 20120224, end: 20120224
  4. ADRIAMYCIN [Concomitant]
     Active Substance: DOXORUBICIN HYDROCHLORIDE
     Indication: INVASIVE DUCTAL BREAST CARCINOMA
     Dosage: UNK
  5. TYLENOL [Concomitant]
     Active Substance: ACETAMINOPHEN
     Dosage: 650 MG
     Route: 048
  6. HERCEPTIN [Concomitant]
     Active Substance: TRASTUZUMAB
     Indication: INVASIVE DUCTAL BREAST CARCINOMA
     Dosage: 175 MG, QW
     Route: 042
  7. NEUPOGEN [Concomitant]
     Active Substance: FILGRASTIM
     Dosage: 480 MG
     Route: 058

REACTIONS (1)
  - Alopecia [Not Recovered/Not Resolved]

NARRATIVE: CASE EVENT DATE: 20120201
